FAERS Safety Report 7437555-9 (Version None)
Quarter: 2011Q2

REPORT INFORMATION
  Report Type: 
  Country: None (occurrence: None)
  Receive Date: 20110426
  Receipt Date: 20110421
  Transmission Date: 20111010
  Serious: Yes (Death, Life-Threatening, Hospitalization)
  Sender: FDA-Public Use
  Company Number: US-GILEAD-2010-0033420

PATIENT
  Sex: Female

DRUGS (8)
  1. LIPITOR [Concomitant]
  2. PLAVIX [Concomitant]
  3. COREG [Concomitant]
  4. ASPIRIN [Concomitant]
  5. RANEXA [Suspect]
     Indication: PRODUCT USED FOR UNKNOWN INDICATION
     Dates: start: 20101015, end: 20101107
  6. LISINOPRIL [Concomitant]
  7. NEXIUM [Concomitant]
  8. IMDUR [Concomitant]

REACTIONS (3)
  - PNEUMONITIS [None]
  - PULMONARY TOXICITY [None]
  - RESPIRATORY FAILURE [None]
